FAERS Safety Report 15742345 (Version 1)
Quarter: 2018Q4

REPORT INFORMATION
  Report Type: Other
  Country: DK (occurrence: DK)
  Receive Date: 20181219
  Receipt Date: 20181219
  Transmission Date: 20190205
  Serious: Yes (Hospitalization)
  Sender: FDA-Public Use
  Company Number: DK-GE HEALTHCARE LIFE SCIENCES-2018CSU005154

PATIENT

DRUGS (14)
  1. OMNIPAQUE [Suspect]
     Active Substance: IOHEXOL
     Indication: COMPUTERISED TOMOGRAM ABDOMEN
     Dosage: 100 ML, SINGLE
     Route: 065
  2. METFORMIN [Concomitant]
     Active Substance: METFORMIN HYDROCHLORIDE
     Indication: TYPE 2 DIABETES MELLITUS
     Dosage: 3000 MG, UNK
     Route: 048
     Dates: start: 20170321
  3. ISOSORBIDE MONONITRATE. [Concomitant]
     Active Substance: ISOSORBIDE MONONITRATE
     Indication: ANGINA PECTORIS
     Dosage: 30 MG, UNK
     Route: 048
     Dates: start: 20181019
  4. COLECALCIFEROL [Concomitant]
     Active Substance: CHOLECALCIFEROL
     Indication: VITAMIN SUPPLEMENTATION
     Dosage: 25 MCG, UNK
     Route: 048
     Dates: start: 20180321
  5. PANTOPRAZOLE SODIUM SESQUIHYDRATE [Concomitant]
     Active Substance: PANTOPRAZOLE SODIUM
     Indication: GASTRIC ULCER
     Dosage: 80 MG, UNK
     Route: 048
     Dates: start: 20170722
  6. ALGINIC ACID [Concomitant]
     Active Substance: ALGINIC ACID
     Indication: GASTROOESOPHAGEAL REFLUX DISEASE
     Route: 048
     Dates: start: 20180111
  7. ACETYLSALICYLIC ACID [Concomitant]
     Active Substance: ASPIRIN
     Indication: ANTICOAGULANT THERAPY
     Dosage: 75 MG, UNK
     Route: 048
     Dates: start: 20160609
  8. PARACETAMOL [Concomitant]
     Active Substance: ACETAMINOPHEN
     Indication: PAIN
     Dosage: 1000 MG, PRN
     Route: 048
  9. IVABRADINE [Concomitant]
     Active Substance: IVABRADINE
     Indication: ANGINA PECTORIS
     Dosage: 10 MG, UNK
     Route: 048
     Dates: start: 20180817
  10. TERBUTALINE [Concomitant]
     Active Substance: TERBUTALINE
     Indication: DYSPNOEA
     Dosage: 0.5 MG, UNK
     Route: 055
  11. OMNIPAQUE [Suspect]
     Active Substance: IOHEXOL
     Indication: PRODUCT USED FOR UNKNOWN INDICATION
  12. RAMIPRIL. [Concomitant]
     Active Substance: RAMIPRIL
     Indication: HYPERTENSION
     Dosage: STYRKE: 5 MG
     Route: 048
     Dates: start: 20170222
  13. TOBRADEX [Concomitant]
     Active Substance: DEXAMETHASONE\TOBRAMYCIN
     Indication: INFLAMMATION
     Dosage: 4 GTT, UNK
     Route: 050
     Dates: start: 20180607
  14. TRAMADOL. [Concomitant]
     Active Substance: TRAMADOL
     Indication: PAIN
     Dosage: 50 MG, PRN
     Route: 048
     Dates: start: 20161014

REACTIONS (2)
  - Dysphagia [Recovered/Resolved]
  - Pharyngeal oedema [Recovered/Resolved]

NARRATIVE: CASE EVENT DATE: 20181020
